FAERS Safety Report 18043203 (Version 1)
Quarter: 2020Q3

REPORT INFORMATION
  Report Type: Spontaneous
  Country: US (occurrence: US)
  Receive Date: 20200720
  Receipt Date: 20200720
  Transmission Date: 20201103
  Serious: No
  Sender: FDA-Public Use
  Company Number: US-PFIZER INC-2020274918

PATIENT
  Age: 57 Year
  Sex: Female
  Weight: 113.38 kg

DRUGS (3)
  1. CELECOXIB. [Suspect]
     Active Substance: CELECOXIB
     Indication: SCIATICA
  2. CELECOXIB. [Suspect]
     Active Substance: CELECOXIB
     Indication: SPINAL DISORDER
  3. CELECOXIB. [Suspect]
     Active Substance: CELECOXIB
     Indication: ARTHRITIS
     Dosage: 100 MG, 1X/DAY
     Route: 048
     Dates: start: 2019

REACTIONS (9)
  - Sciatica [Unknown]
  - Insomnia [Unknown]
  - Body height decreased [Unknown]
  - Off label use [Unknown]
  - Muscle atrophy [Unknown]
  - Muscle tightness [Unknown]
  - Drug ineffective for unapproved indication [Unknown]
  - Weight increased [Unknown]
  - Dysstasia [Unknown]
